FAERS Safety Report 17957424 (Version 2)
Quarter: 2020Q3

REPORT INFORMATION
  Report Type: Spontaneous
  Country: US (occurrence: US)
  Receive Date: 20200629
  Receipt Date: 20200701
  Transmission Date: 20201103
  Serious: Yes (Other)
  Sender: FDA-Public Use
  Company Number: US-PFIZER INC-2020246600

PATIENT
  Sex: Female

DRUGS (7)
  1. ESTRADIOL. [Suspect]
     Active Substance: ESTRADIOL
     Dosage: UNK (CHANGING EVERY 4 DAYS, FOR 20 DAYS)
  2. ELIQUIS [Concomitant]
     Active Substance: APIXABAN
     Indication: ANTICOAGULANT THERAPY
     Dosage: 5 MG, 2X/DAY
     Dates: start: 2016
  3. PROVERA [Suspect]
     Active Substance: MEDROXYPROGESTERONE ACETATE
     Dosage: UNK (5MG; WHITE SCORED HEXAGONAL; TAKE ONE?HALF ONCE DAILY FOR 10 DAY AND THEN OFF 20 DAYS)
     Route: 048
  4. ESTRADIOL. [Suspect]
     Active Substance: ESTRADIOL
     Dosage: UNK, 2X/WEEK (5MG CUT IN HALF; ONE PATCH TWICE WEEKLY TO SKIN)
  5. PROVERA [Suspect]
     Active Substance: MEDROXYPROGESTERONE ACETATE
     Indication: HORMONE THERAPY
     Dosage: 2.5 MG, DAILY
  6. LOSARTAN POTASSIUM. [Concomitant]
     Active Substance: LOSARTAN POTASSIUM
     Indication: BLOOD PRESSURE ABNORMAL
     Dosage: 25 MG, 1X/DAY
     Route: 048
  7. SOTALOL HYDROCHLORIDE. [Concomitant]
     Active Substance: SOTALOL HYDROCHLORIDE
     Indication: ATRIAL FIBRILLATION
     Dosage: 80 MG, 2X/DAY
     Route: 048
     Dates: start: 2016

REACTIONS (2)
  - Polyp [Recovered/Resolved]
  - Blood pressure increased [Unknown]
